FAERS Safety Report 13272423 (Version 1)
Quarter: 2017Q1

REPORT INFORMATION
  Report Type: Spontaneous
  Country: DE (occurrence: DE)
  Receive Date: 20170227
  Receipt Date: 20170227
  Transmission Date: 20170428
  Serious: Yes (Life-Threatening, Hospitalization)
  Sender: FDA-Public Use
  Company Number: DE-009507513-1702DEU010400

PATIENT
  Age: 67 Year
  Sex: Female

DRUGS (10)
  1. REMERGIL [Suspect]
     Active Substance: MIRTAZAPINE
     Dosage: 30 MG, 1 DAY
     Dates: start: 20100822, end: 20100830
  2. GABAPENTIN. [Concomitant]
     Active Substance: GABAPENTIN
     Dosage: 1500 MG, 1 DAY.
     Dates: start: 20100610
  3. METFORMIN [Concomitant]
     Active Substance: METFORMIN HYDROCHLORIDE
     Dosage: 1000 MG, 1 DAY
     Dates: start: 20100610
  4. THYROXIN [Concomitant]
     Active Substance: LEVOTHYROXINE
     Dosage: 75 MICROGRAM, 1 DAY
     Dates: end: 20100610
  5. BELOC-ZOK [Concomitant]
     Active Substance: METOPROLOL SUCCINATE
     Dosage: 190 MG, 1 DAY
     Dates: end: 20100610
  6. CAPTOPRIL. [Concomitant]
     Active Substance: CAPTOPRIL
     Dosage: 150 MG, UNK
     Dates: start: 20100610
  7. PRAVASTATIN. [Concomitant]
     Active Substance: PRAVASTATIN
     Dosage: 20 MG, 1 DAY
     Dates: start: 20100610
  8. DIGITOXIN [Concomitant]
     Active Substance: DIGITOXIN
     Dosage: 0.07 MG, 1 DAY
     Dates: start: 20100610
  9. FALITHROM [Concomitant]
     Active Substance: PHENPROCOUMON
     Dosage: 1.5 MG, 1 DAY
     Dates: end: 20100830
  10. EDRONAX [Concomitant]
     Active Substance: REBOXETINE MESYLATE
     Dosage: 4 MG, 1 DAY
     Dates: end: 20100826

REACTIONS (3)
  - Altered state of consciousness [Recovered/Resolved]
  - Subarachnoid haemorrhage [Recovered/Resolved]
  - Hypertension [Recovered/Resolved]

NARRATIVE: CASE EVENT DATE: 20100830
